FAERS Safety Report 5230384-6 (Version None)
Quarter: 2007Q1

REPORT INFORMATION
  Report Type: 
  Country: None (occurrence: None)
  Receive Date: 20070201
  Receipt Date: 20070118
  Transmission Date: 20070707
  Serious: No
  Sender: FDA-Public Use
  Company Number: 2007JP000287

PATIENT
  Sex: Female
  Weight: 21 kg

DRUGS (1)
  1. PROTOPIC [Suspect]
     Indication: DERMATITIS ATOPIC
     Dosage: 0.03%, TOPICAL
     Route: 061
     Dates: start: 20060128

REACTIONS (1)
  - SKIN PAPILLOMA [None]
